FAERS Safety Report 20200808 (Version 4)
Quarter: 2022Q2

REPORT INFORMATION
  Report Type: Spontaneous
  Country: CZ (occurrence: CZ)
  Receive Date: 20211217
  Receipt Date: 20220624
  Transmission Date: 20220721
  Serious: Yes (Death, Other)
  Sender: FDA-Public Use
  Company Number: CZ-PFIZER INC-202101728209

PATIENT
  Age: 60 Year
  Sex: Female

DRUGS (5)
  1. MYLOTARG [Suspect]
     Active Substance: GEMTUZUMAB OZOGAMICIN
     Indication: Acute myeloid leukaemia
     Dosage: 1ST INDUCTION, 5 MG INTRAVENOUSLY
     Route: 042
     Dates: start: 20200703, end: 20200703
  2. MYLOTARG [Suspect]
     Active Substance: GEMTUZUMAB OZOGAMICIN
     Dosage: 1ST INDUCTION, 5 MG INTRAVENOUSLY
     Route: 042
     Dates: start: 20200706, end: 20200706
  3. MYLOTARG [Suspect]
     Active Substance: GEMTUZUMAB OZOGAMICIN
     Dosage: 1ST INDUCTION, 5 MG INTRAVENOUSLY
     Route: 042
     Dates: start: 20200709, end: 20200709
  4. DAUNORUBICIN [Concomitant]
     Active Substance: DAUNORUBICIN
     Dosage: 1ST INDUCTION FOR DAY 1-3
     Dates: start: 20200703, end: 20200709
  5. CYTARABINE [Concomitant]
     Active Substance: CYTARABINE
     Dosage: 1ST INDUCTION FOR DAY 1-7
     Dates: start: 20200703, end: 20200709

REACTIONS (5)
  - Neoplasm recurrence [Fatal]
  - Sepsis [Recovered/Resolved]
  - Cholecystitis [Recovered/Resolved]
  - Liver function test increased [Unknown]
  - Colitis [Recovered/Resolved]

NARRATIVE: CASE EVENT DATE: 20200720
